FAERS Safety Report 16235509 (Version 1)
Quarter: 2019Q2

REPORT INFORMATION
  Report Type: Spontaneous
  Country: KR (occurrence: KR)
  Receive Date: 20190424
  Receipt Date: 20190424
  Transmission Date: 20190711
  Serious: Yes (Other)
  Sender: FDA-Public Use
  Company Number: KR-ALLERGAN-1917434US

PATIENT
  Sex: Male

DRUGS (1)
  1. OZURDEX [Suspect]
     Active Substance: DEXAMETHASONE
     Indication: RETINAL DETACHMENT
     Dosage: 0.7 MG, SINGLE
     Route: 031

REACTIONS (3)
  - Off label use [Unknown]
  - Intraocular pressure increased [Unknown]
  - Pupillary block [Recovered/Resolved]
